FAERS Safety Report 8391512-7 (Version None)
Quarter: 2012Q2

REPORT INFORMATION
  Report Type: 
  Country: None (occurrence: None)
  Receive Date: 20120529
  Receipt Date: 20120516
  Transmission Date: 20120825
  Serious: Yes (Hospitalization, Other)
  Sender: FDA-Public Use
  Company Number: CN-JNJFOC-20100607162

PATIENT
  Sex: Female

DRUGS (2)
  1. MICONAZOLE NITRATE [Suspect]
     Indication: VAGINAL INFECTION
     Route: 067
     Dates: start: 20100621, end: 20100623
  2. MICONAZOLE NITRATE [Suspect]
     Indication: VULVOVAGINAL CANDIDIASIS
     Route: 067
     Dates: start: 20100621, end: 20100623

REACTIONS (4)
  - ABORTION SPONTANEOUS [None]
  - MATERNAL EXPOSURE DURING PREGNANCY [None]
  - INTENTIONAL DRUG MISUSE [None]
  - VAGINAL HAEMORRHAGE [None]
